FAERS Safety Report 19476800 (Version 1)
Quarter: 2021Q2

REPORT INFORMATION
  Report Type: Spontaneous
  Country: US (occurrence: US)
  Receive Date: 20210629
  Receipt Date: 20210629
  Transmission Date: 20210717
  Serious: Yes (Hospitalization)
  Sender: FDA-Public Use
  Company Number: None

PATIENT
  Age: 52 Year
  Sex: Female

DRUGS (1)
  1. AUSTEDO [Suspect]
     Active Substance: DEUTETRABENAZINE
     Indication: EXTRAPYRAMIDAL DISORDER
     Route: 048
     Dates: start: 20210511

REACTIONS (1)
  - Seizure [None]

NARRATIVE: CASE EVENT DATE: 20210620
